FAERS Safety Report 10234996 (Version 1)
Quarter: 2014Q1

REPORT INFORMATION
  Report Type: Spontaneous
  Country: US (occurrence: None)
  Receive Date: 20140306
  Receipt Date: 20140306
  Transmission Date: 20141002
  Serious: Yes (Other)
  Sender: FDA-Public Use
  Company Number: 163-21880-13044394

PATIENT
  Age: 73 Year
  Sex: Female

DRUGS (9)
  1. REVLIMID (LENALIDOMIDE) (10 MILLIGRAM, CAPSULES) [Suspect]
     Indication: B-CELL LYMPHOMA
     Route: 048
     Dates: start: 20111211
  2. ACYCLOVIR (ACICLOVIR) (ACICLOVIR) [Concomitant]
  3. ADULT LOW DOSE ASPIRIN (ACETYLSALICYLIC ACID) [Concomitant]
  4. CYMBALTA [Concomitant]
  5. NEXIUM (ESOMEPRAZOLE) [Concomitant]
  6. TRAVATAN Z (TRAVOPROST) [Concomitant]
  7. VESICARE (SOLIFENACIN SUCCINATE) [Concomitant]
  8. ZOFRAN (ONDANSETRON HYDROCHLORIDE) [Concomitant]
  9. COSOPT (COSPOT) [Concomitant]

REACTIONS (1)
  - Cataract [None]
